FAERS Safety Report 10019585 (Version 6)
Quarter: 2019Q2

REPORT INFORMATION
  Report Type: Report from Study
  Country: CO (occurrence: CO)
  Receive Date: 20140318
  Receipt Date: 20190523
  Transmission Date: 20190711
  Serious: Yes (Disabling, Other)
  Sender: FDA-Public Use
  Company Number: PHHY2014CO014613

PATIENT
  Age: 45 Year
  Sex: Female
  Weight: 64 kg

DRUGS (5)
  1. VITAMIN D3 [Concomitant]
     Active Substance: CHOLECALCIFEROL
     Indication: MULTIPLE SCLEROSIS
     Dosage: 2000 U
     Route: 065
     Dates: start: 201103
  2. PREGABALIN. [Concomitant]
     Active Substance: PREGABALIN
     Indication: NEURALGIA
     Dosage: 75 MG, BID
     Route: 065
     Dates: start: 201201
  3. VITAMIN C [Concomitant]
     Active Substance: ASCORBIC ACID
     Indication: PH URINE DECREASED
     Dosage: 3000 MG, UNK
     Route: 065
     Dates: start: 201208
  4. GILENYA [Suspect]
     Active Substance: FINGOLIMOD HYDROCHLORIDE
     Indication: MULTIPLE SCLEROSIS
     Dosage: 0.5 MG, QD
     Route: 048
     Dates: start: 20131017, end: 20190415
  5. ESCITALOPRAM [Concomitant]
     Active Substance: ESCITALOPRAM OXALATE
     Indication: DEPRESSION
     Dosage: 20 MG
     Route: 065
     Dates: start: 201208

REACTIONS (10)
  - Oedema peripheral [Recovered/Resolved]
  - Furuncle [Recovered/Resolved]
  - Erythema [Recovered/Resolved]
  - Abscess [Recovered/Resolved]
  - Purulence [Unknown]
  - Skin lesion [Not Recovered/Not Resolved]
  - Furuncle [Unknown]
  - Skin warm [Recovered/Resolved]
  - Fungal infection [Unknown]
  - Hypertension [Unknown]

NARRATIVE: CASE EVENT DATE: 20140127
